FAERS Safety Report 9303986 (Version 2)
Quarter: 2013Q3

REPORT INFORMATION
  Report Type: Spontaneous
  Country: BR (occurrence: BR)
  Receive Date: 20130522
  Receipt Date: 20130725
  Transmission Date: 20140515
  Serious: Yes (Disabling, Other)
  Sender: FDA-Public Use
  Company Number: PHHY2013BR049920

PATIENT
  Age: 66 Year
  Sex: Male

DRUGS (9)
  1. APRESOLIN [Suspect]
     Indication: HEART TRANSPLANT
     Dosage: 1 DF, (25 MG) TID (MORNING, AFTERNOON AND NIGHT)
     Route: 048
  2. APRESOLIN [Suspect]
     Indication: OFF LABEL USE
     Dosage: 3 DF (25 MG) A DAY
     Route: 048
  3. APRESOLIN [Suspect]
     Dosage: 3 DF (25 MG) A DAY
     Route: 048
     Dates: start: 201306
  4. ATENOLOL [Suspect]
     Dosage: UNK UKN, UNK
  5. FUROSEMIDE [Suspect]
     Dosage: UNK UKN, UNK
  6. CYCLOSPORINE [Concomitant]
     Indication: HEART TRANSPLANT
     Dosage: 2 DF (125 MG) A DAY
     Route: 048
     Dates: start: 2002
  7. MYFORTIC [Concomitant]
     Indication: HEART TRANSPLANT
     Dosage: 3 DF (360 MG) A DAY
     Route: 048
     Dates: start: 2002
  8. SIMVASTATIN [Concomitant]
     Dosage: 1 DF (10 MG) A DAY
     Route: 048
  9. AAS [Concomitant]
     Indication: BLOOD VISCOSITY INCREASED
     Dosage: 1 DF (100 MG) A DAY
     Route: 048

REACTIONS (8)
  - Deafness [Recovered/Resolved]
  - Psychopathic personality [Recovered/Resolved]
  - Hypertension [Recovered/Resolved]
  - Stress [Recovered/Resolved]
  - Abdominal pain upper [Recovered/Resolved]
  - Tremor [Recovered/Resolved]
  - Dizziness [Recovered/Resolved]
  - Headache [Recovered/Resolved]
